FAERS Safety Report 6421757-4 (Version None)
Quarter: 2009Q4

REPORT INFORMATION
  Report Type: 
  Country: None (occurrence: None)
  Receive Date: 20091030
  Receipt Date: 20091027
  Transmission Date: 20100525
  Serious: Yes (Other)
  Sender: FDA-Public Use
  Company Number: A0696053A

PATIENT
  Age: 51 Year
  Sex: Female

DRUGS (13)
  1. PARNATE [Suspect]
     Indication: DEPRESSION
     Dosage: 40MG TWICE PER DAY
     Route: 048
     Dates: start: 19840101
  2. HERBAL MEDICATION [Suspect]
     Dates: end: 20071123
  3. HERBAL SLEEPING MEDICATION [Suspect]
     Dosage: 3TAB PER DAY
     Route: 048
     Dates: start: 20080430
  4. VEGETABLE PROTEIN [Suspect]
     Dates: end: 20080421
  5. UNSPECIFIED ANTIBIOTIC AGENT [Suspect]
  6. UNKNOWN [Suspect]
     Dosage: 1500MG TWICE PER DAY
     Dates: start: 20090901, end: 20091025
  7. LAMICTAL [Concomitant]
     Route: 048
  8. VALIUM [Concomitant]
  9. SYNTHROID [Concomitant]
  10. RISPERDAL [Concomitant]
  11. NEURONTIN [Concomitant]
  12. KEPPRA [Concomitant]
  13. DIAZEPAM [Concomitant]

REACTIONS (12)
  - ADVERSE EVENT [None]
  - AGITATION [None]
  - ASTHENIA [None]
  - DIZZINESS [None]
  - FATIGUE [None]
  - FEELING ABNORMAL [None]
  - HEADACHE [None]
  - HYPERTHYROIDISM [None]
  - IRRITABILITY [None]
  - MUSCLE SPASMS [None]
  - PAIN IN EXTREMITY [None]
  - THYROID DISORDER [None]
